FAERS Safety Report 6300097-8 (Version None)
Quarter: 2009Q3

REPORT INFORMATION
  Report Type: 
  Country: None (occurrence: None)
  Receive Date: 20090805
  Receipt Date: 20090805
  Transmission Date: 20100115
  Serious: Yes (Hospitalization)
  Sender: FDA-Public Use
  Company Number: None

PATIENT
  Sex: Male
  Weight: 70.9 kg

DRUGS (3)
  1. CISPLATIN [Suspect]
     Dosage: 39.8 MG
  2. ERBITUX [Suspect]
     Dosage: 442.5 MG
  3. CAMPTOSAR [Suspect]
     Dosage: 36.6 MG

REACTIONS (8)
  - ASTHENIA [None]
  - DEHYDRATION [None]
  - FATIGUE [None]
  - HYPOTENSION [None]
  - NAUSEA [None]
  - PLATELET COUNT DECREASED [None]
  - PYREXIA [None]
  - SEPSIS [None]
